FAERS Safety Report 6544175-7 (Version None)
Quarter: 2010Q1

REPORT INFORMATION
  Report Type: 
  Country: None (occurrence: None)
  Receive Date: 20100119
  Receipt Date: 20100119
  Transmission Date: 20100710
  Serious: No
  Sender: FDA-Public Use
  Company Number: None

PATIENT
  Sex: Female
  Weight: 53.978 kg

DRUGS (12)
  1. TYLENOL ARTHRITIS  50 MG JOHNSON AND JOHNSON/MCNEIL [Suspect]
     Indication: RHEUMATOID ARTHRITIS
     Dosage: 650 MG BID 6-10 TIMES A DAY PO
     Route: 048
     Dates: start: 20050101
  2. TYLENOL (CAPLET) [Suspect]
  3. ZYRTEC [Concomitant]
  4. LUNESTA [Concomitant]
  5. VALTREX [Concomitant]
  6. PREVACID [Concomitant]
  7. METHOTREXATE [Concomitant]
  8. PLAQUENOL [Concomitant]
  9. TRAMADOL [Concomitant]
  10. ZEGRID [Concomitant]
  11. BELLA PHENOBARB [Concomitant]
  12. PEPCID [Concomitant]

REACTIONS (6)
  - ABDOMINAL DISTENSION [None]
  - ABDOMINAL PAIN [None]
  - DIARRHOEA [None]
  - GASTRITIS [None]
  - GASTROOESOPHAGEAL REFLUX DISEASE [None]
  - WEIGHT DECREASED [None]
